FAERS Safety Report 5192090-6 (Version None)
Quarter: 2006Q4

REPORT INFORMATION
  Report Type: 
  Country: None (occurrence: None)
  Receive Date: 20061220
  Receipt Date: 20061207
  Transmission Date: 20070319
  Serious: Yes (Other)
  Sender: FDA-Public Use
  Company Number: 2006152364

PATIENT
  Age: 59 Year
  Sex: Female
  Weight: 73.0291 kg

DRUGS (10)
  1. LYRICA [Suspect]
     Indication: NEURALGIA
     Dosage: 75 MG (75 MG, 1 IN 1 D)
     Dates: start: 20061101
  2. HYDROXYZINE [Concomitant]
  3. BUSPIRONE HCL [Concomitant]
  4. FAMVIR [Concomitant]
  5. TRANXENE [Concomitant]
  6. BUMETANIDE [Concomitant]
  7. ARIMIDEX [Concomitant]
  8. POTASSIUM CHLORIDE [Concomitant]
  9. RANITIDINE [Concomitant]
  10. AMBIEN [Concomitant]

REACTIONS (5)
  - FEELING ABNORMAL [None]
  - INSOMNIA [None]
  - NIGHT SWEATS [None]
  - SOMNOLENCE [None]
  - URINARY INCONTINENCE [None]
